FAERS Safety Report 4764262-3 (Version None)
Quarter: 2005Q3

REPORT INFORMATION
  Report Type: 
  Country: None (occurrence: None)
  Receive Date: 20050907
  Receipt Date: 20050907
  Transmission Date: 20060218
  Serious: Yes (Hospitalization)
  Sender: FDA-Public Use
  Company Number: None

PATIENT
  Age: 9 Month
  Sex: Male

DRUGS (5)
  1. RILUZOLE [Suspect]
     Indication: INVESTIGATION
     Dosage: 20MG TWICE ADAY OTHER
     Dates: start: 20050831, end: 20050901
  2. RILUZOLE [Suspect]
     Indication: SPINAL MUSCULAR ATROPHY
     Dosage: 20MG TWICE ADAY OTHER
     Dates: start: 20050831, end: 20050901
  3. ZANTAC [Concomitant]
  4. PULMICORT [Concomitant]
  5. BETHANECHOL [Concomitant]

REACTIONS (4)
  - ACUTE RESPIRATORY FAILURE [None]
  - ATELECTASIS [None]
  - BRONCHIAL OBSTRUCTION [None]
  - PYREXIA [None]
